FAERS Safety Report 21351831 (Version 1)
Quarter: 2022Q3

REPORT INFORMATION
  Report Type: Spontaneous
  Country: US (occurrence: None)
  Receive Date: 20220917
  Receipt Date: 20220917
  Transmission Date: 20221026
  Serious: No
  Sender: FDA-Public Use
  Company Number: None

PATIENT
  Age: 82 Year
  Sex: Male
  Weight: 90 kg

DRUGS (1)
  1. NIRMATRELVIR\RITONAVIR [Suspect]
     Active Substance: NIRMATRELVIR\RITONAVIR
     Indication: COVID-19
     Dosage: 2 TAB BID PO?
     Route: 048
     Dates: start: 20220913

REACTIONS (3)
  - Product prescribing issue [None]
  - Incorrect dose administered [None]
  - Medication error [None]

NARRATIVE: CASE EVENT DATE: 20220913
